FAERS Safety Report 6599949-3 (Version None)
Quarter: 2010Q1

REPORT INFORMATION
  Report Type: 
  Country: None (occurrence: None)
  Receive Date: 20100217
  Receipt Date: 20100205
  Transmission Date: 20100710
  Serious: Yes (Other)
  Sender: FDA-Public Use
  Company Number: MM-1180802

PATIENT

DRUGS (1)
  1. MAXITROL [Suspect]
     Dosage: OPHTHALMIC
     Route: 047

REACTIONS (3)
  - BLINDNESS UNILATERAL [None]
  - ENDOPHTHALMITIS [None]
  - PRODUCT QUALITY ISSUE [None]
